FAERS Safety Report 16140935 (Version 1)
Quarter: 2019Q2

REPORT INFORMATION
  Report Type: Spontaneous
  Country: US (occurrence: US)
  Receive Date: 20190330
  Receipt Date: 20190330
  Transmission Date: 20190711
  Serious: No
  Sender: FDA-Public Use
  Company Number: None

PATIENT
  Age: 68 Year
  Sex: Female
  Weight: 87.75 kg

DRUGS (8)
  1. OMEPRAZOLE. [Concomitant]
     Active Substance: OMEPRAZOLE
  2. GLUCOSAMINE WITH CHONDROITIN [Concomitant]
  3. ICAPS [Concomitant]
     Active Substance: MINERALS\VITAMINS
  4. VALSARTAN. [Concomitant]
     Active Substance: VALSARTAN
  5. MULTI VITAMIN [Concomitant]
     Active Substance: VITAMINS
  6. IRBESARTAN. [Suspect]
     Active Substance: IRBESARTAN
     Indication: HYPERTENSION
  7. LEVOTHYROXINE. [Concomitant]
     Active Substance: LEVOTHYROXINE
  8. AREDS 2 [Concomitant]
     Active Substance: MINERALS\VITAMINS

REACTIONS (8)
  - Recalled product administered [None]
  - Duodenal ulcer [None]
  - Ulcer haemorrhage [None]
  - Dysphagia [None]
  - Dyspepsia [None]
  - Oesophageal spasm [None]
  - Gastric ulcer [None]
  - Oesophageal ulcer [None]

NARRATIVE: CASE EVENT DATE: 20180926
